FAERS Safety Report 5546159-4 (Version None)
Quarter: 2007Q4

REPORT INFORMATION
  Report Type: 
  Country: None (occurrence: None)
  Receive Date: 20071211
  Receipt Date: 20071129
  Transmission Date: 20080405
  Serious: Yes (Other)
  Sender: FDA-Public Use
  Company Number: US-BAYER-US-2007-034631

PATIENT
  Sex: Female

DRUGS (1)
  1. MIRENA [Suspect]
     Route: 015

REACTIONS (2)
  - RADIATION INJURY [None]
  - RECTAL CANCER [None]
